FAERS Safety Report 4330104-3 (Version None)
Quarter: 2004Q1

REPORT INFORMATION
  Report Type: 
  Country: None (occurrence: None)
  Receive Date: 20040329
  Receipt Date: 20040316
  Transmission Date: 20041129
  Serious: Yes (Death, Other)
  Sender: FDA-Public Use
  Company Number: 200310393BYL

PATIENT
  Age: 75 Year
  Sex: Female

DRUGS (8)
  1. CIPROFLOXACIN [Suspect]
     Indication: PNEUMONIA
     Dosage: 300 MG, BID, INTRAVENOUS DRIP
     Route: 041
     Dates: start: 20030911, end: 20030924
  2. FUNGUARD (ANTIFUNGALS FOR SYSTEMIC USE) [Suspect]
     Dosage: 50 MG, TOTAL DAILY, INTRAVENOUS DRIP
     Route: 041
     Dates: start: 20030909, end: 20030923
  3. AMINO ACID INJ [Concomitant]
  4. VITAJECT [Concomitant]
  5. ELEMENMIC [Concomitant]
  6. HUMULIN R [Concomitant]
  7. DIAMOX [Concomitant]
  8. CARBENIN [Concomitant]

REACTIONS (3)
  - CONDITION AGGRAVATED [None]
  - LIVER DISORDER [None]
  - RESPIRATORY FAILURE [None]
